FAERS Safety Report 20582163 (Version 1)
Quarter: 2022Q1

REPORT INFORMATION
  Report Type: Spontaneous
  Country: US (occurrence: None)
  Receive Date: 20220310
  Receipt Date: 20220310
  Transmission Date: 20220423
  Serious: Yes (Death)
  Sender: FDA-Public Use
  Company Number: None

PATIENT
  Sex: Male
  Weight: 51.35 kg

DRUGS (6)
  1. AKYNZEO [Suspect]
     Active Substance: NETUPITANT\PALONOSETRON HYDROCHLORIDE
     Dosage: FREQUENCY : EVERY OTHER WEEK;?
     Route: 042
  2. OPDIVO [Concomitant]
     Active Substance: NIVOLUMAB
  3. OXALIPLATIN [Concomitant]
     Active Substance: OXALIPLATIN
  4. FLUOROURACIL [Concomitant]
     Active Substance: FLUOROURACIL
  5. LEUCOVORIN [Concomitant]
     Active Substance: LEUCOVORIN
  6. NEXIUM [Concomitant]
     Active Substance: ESOMEPRAZOLE MAGNESIUM

REACTIONS (1)
  - Death [None]
